FAERS Safety Report 7526072-3 (Version None)
Quarter: 2011Q2

REPORT INFORMATION
  Report Type: 
  Country: None (occurrence: None)
  Receive Date: 20110606
  Receipt Date: 20110602
  Transmission Date: 20111010
  Serious: Yes (Death)
  Sender: FDA-Public Use
  Company Number: US-BRISTOL-MYERS SQUIBB COMPANY-15759574

PATIENT
  Age: 68 Year
  Sex: Female
  Weight: 59 kg

DRUGS (16)
  1. PRILOSEC [Concomitant]
     Dates: start: 19990101
  2. SODIUM CROMOGLICATE [Concomitant]
     Dates: start: 20110101
  3. PEMETREXED DISODIUM [Suspect]
     Indication: NON-SMALL CELL LUNG CANCER
     Dosage: LAST DOSE:2MAY11
     Route: 042
     Dates: start: 20110411, end: 20110512
  4. VITAMIN B-12 [Concomitant]
     Dates: start: 20110405
  5. ASPIRIN [Concomitant]
     Dates: start: 20110322
  6. XANAX [Concomitant]
     Dates: start: 19900101
  7. COMPAZINE [Concomitant]
     Dates: start: 20110405
  8. FOLIC ACID [Concomitant]
     Dates: start: 20110405
  9. CISPLATIN [Suspect]
     Indication: NON-SMALL CELL LUNG CANCER
     Dosage: LAST DOSE:2MAY11
     Route: 042
     Dates: start: 20110411, end: 20110512
  10. VERAPAMIL [Concomitant]
     Dates: start: 19900101
  11. DEXAMETHASONE [Concomitant]
     Dates: start: 20110405
  12. PROMETHAZINE [Concomitant]
     Dates: start: 20110322
  13. DITROPAN XL [Concomitant]
     Dates: start: 19950101
  14. ESTRADIOL [Concomitant]
     Dates: start: 19950101
  15. LEVOTHYROXINE SODIUM [Concomitant]
     Dates: start: 19980101
  16. MECLIZINE HCL [Concomitant]
     Dates: start: 20110101

REACTIONS (3)
  - HAEMATEMESIS [None]
  - CARDIO-RESPIRATORY ARREST [None]
  - ABDOMINAL DISTENSION [None]
